FAERS Safety Report 8807037 (Version 1)
Quarter: 2012Q4

REPORT INFORMATION
  Report Type: 
  Country: AR (occurrence: AR)
  Receive Date: 20120925
  Receipt Date: 20120925
  Transmission Date: 20130627
  Serious: Yes (Hospitalization)
  Sender: FDA-Public Use
  Company Number: PHHY2012AR081616

PATIENT
  Sex: Female

DRUGS (3)
  1. EXFORGE [Suspect]
     Indication: BLOOD PRESSURE
     Dosage: 160/10mg, daily
     Dates: start: 2009
  2. EXFORGE [Suspect]
     Dosage: 160/5mg,
     Dates: start: 2012
  3. TRAPAX [Concomitant]

REACTIONS (5)
  - Hemiplegia [Recovering/Resolving]
  - Fall [Recovering/Resolving]
  - Feeling abnormal [Recovered/Resolved]
  - Blood pressure decreased [Recovered/Resolved]
  - Syncope [Recovered/Resolved]
